FAERS Safety Report 8847755 (Version 1)
Quarter: 2012Q4

REPORT INFORMATION
  Report Type: 
  Country: GB (occurrence: GB)
  Receive Date: 20121018
  Receipt Date: 20121018
  Transmission Date: 20130627
  Serious: Yes (Other)
  Sender: FDA-Public Use
  Company Number: GB-TEVA-365013ISR

PATIENT
  Age: 50 Year
  Sex: Female

DRUGS (3)
  1. DOXAZOSIN [Suspect]
     Indication: BLOOD PRESSURE
     Route: 065
  2. EPILIM CHRONO [Interacting]
     Indication: EPILEPSY
     Route: 048
  3. CITALOPRAM [Concomitant]

REACTIONS (2)
  - Epilepsy [Unknown]
  - Drug interaction [Unknown]
